FAERS Safety Report 8416012-7 (Version None)
Quarter: 2012Q2

REPORT INFORMATION
  Report Type: 
  Country: None (occurrence: None)
  Receive Date: 20120606
  Receipt Date: 20120604
  Transmission Date: 20120825
  Serious: Yes (Other)
  Sender: FDA-Public Use
  Company Number: US-PFIZER INC-2012134124

PATIENT
  Sex: Female
  Weight: 117.9 kg

DRUGS (2)
  1. XOPENEX [Concomitant]
     Indication: ASTHMA
     Dosage: UNK, AS NEEDED
  2. TIKOSYN [Suspect]
     Indication: ARRHYTHMIA
     Dosage: 0.5 MG, 2X/DAY
     Route: 048
     Dates: start: 20110701

REACTIONS (1)
  - ARRHYTHMIA [None]
